FAERS Safety Report 11835439 (Version 1)
Quarter: 2015Q4

REPORT INFORMATION
  Report Type: Report from Study
  Country: US (occurrence: US)
  Receive Date: 20151215
  Receipt Date: 20151215
  Transmission Date: 20160305
  Serious: No
  Sender: FDA-Public Use
  Company Number: US-AMGEN-USASL2015133651

PATIENT
  Age: 33 Year
  Sex: Female

DRUGS (1)
  1. ENBREL [Suspect]
     Active Substance: ETANERCEPT
     Indication: RHEUMATOID ARTHRITIS
     Dosage: 50 MG, QWK
     Route: 065

REACTIONS (9)
  - Injection site reaction [Unknown]
  - Drug dose omission [Unknown]
  - Injection site erythema [Unknown]
  - Injection site rash [Unknown]
  - Viral infection [Unknown]
  - Injection site discolouration [Unknown]
  - Injection site pruritus [Unknown]
  - Upper respiratory tract infection [Not Recovered/Not Resolved]
  - Injection site pain [Unknown]

NARRATIVE: CASE EVENT DATE: 201511
